FAERS Safety Report 7834610-6 (Version None)
Quarter: 2011Q4

REPORT INFORMATION
  Report Type: 
  Country: None (occurrence: None)
  Receive Date: 20111024
  Receipt Date: 20110118
  Transmission Date: 20120403
  Serious: No
  Sender: FDA-Public Use
  Company Number: US-BAUSCH-2011BL000316

PATIENT
  Age: 69 Year
  Sex: Female

DRUGS (8)
  1. COLLYRIUM EYE WASH [Suspect]
     Route: 047
     Dates: start: 20110114, end: 20110114
  2. NEOMYCIN AND POLYMYXIN B SULFATES AND DEXAMETH OPHTH SUS USP [Suspect]
     Indication: OFF LABEL USE
     Route: 047
     Dates: start: 20110113, end: 20110113
  3. COLLYRIUM EYE WASH [Suspect]
     Route: 047
     Dates: start: 20110114, end: 20110114
  4. NEOMYCIN AND POLYMYXIN B SULFATES AND DEXAMETH OPHTH SUS USP [Suspect]
     Route: 047
     Dates: start: 20110114, end: 20110114
  5. NEOMYCIN AND POLYMYXIN B SULFATES AND DEXAMETH OPHTH SUS USP [Suspect]
     Route: 047
     Dates: start: 20110114, end: 20110114
  6. COLLYRIUM EYE WASH [Suspect]
     Indication: OFF LABEL USE
     Route: 047
     Dates: start: 20110113, end: 20110113
  7. NEOMYCIN AND POLYMYXIN B SULFATES AND DEXAMETH OPHTH SUS USP [Suspect]
     Indication: EYE IRRITATION
     Route: 047
     Dates: start: 20110113, end: 20110113
  8. COLLYRIUM EYE WASH [Suspect]
     Indication: EYE IRRITATION
     Route: 047
     Dates: start: 20110113, end: 20110113

REACTIONS (2)
  - EYE IRRITATION [None]
  - EYE PAIN [None]
